FAERS Safety Report 6808231-8 (Version None)
Quarter: 2010Q2

REPORT INFORMATION
  Report Type: 
  Country: None (occurrence: None)
  Receive Date: 20100629
  Receipt Date: 20090428
  Transmission Date: 20101027
  Serious: No
  Sender: FDA-Public Use
  Company Number: US-PFIZER INC-2009206048

PATIENT
  Sex: Male
  Weight: 78 kg

DRUGS (4)
  1. VIAGRA [Suspect]
     Indication: ERECTILE DYSFUNCTION
     Dosage: 50 MG, UNK
     Dates: start: 20080101
  2. CIALIS [Suspect]
     Dosage: UNK
     Dates: start: 20090101, end: 20090101
  3. SYNTHROID [Concomitant]
     Dosage: 25 UG, UNK
  4. SYNTHROID [Concomitant]
     Dosage: 50 UG, UNK

REACTIONS (3)
  - DRUG INEFFECTIVE [None]
  - MUSCLE SPASMS [None]
  - THYROID DISORDER [None]
